FAERS Safety Report 22056026 (Version 3)
Quarter: 2023Q4

REPORT INFORMATION
  Report Type: Report from Study
  Country: US (occurrence: US)
  Receive Date: 20230302
  Receipt Date: 20231129
  Transmission Date: 20240109
  Serious: Yes (Other)
  Sender: FDA-Public Use
  Company Number: US-BAUSCH-BL-2023-003399

PATIENT
  Age: 59 Year
  Sex: Female

DRUGS (1)
  1. SILIQ [Suspect]
     Active Substance: BRODALUMAB
     Indication: Psoriasis
     Dosage: 210 MG 1.5 ML
     Route: 058
     Dates: start: 202212

REACTIONS (3)
  - Breast cancer [Unknown]
  - Therapy cessation [Unknown]
  - Product dose omission issue [Unknown]
